FAERS Safety Report 6103765-6 (Version None)
Quarter: 2009Q1

REPORT INFORMATION
  Report Type: 
  Country: None (occurrence: None)
  Receive Date: 20090305
  Receipt Date: 20090302
  Transmission Date: 20090719
  Serious: Yes (Hospitalization)
  Sender: FDA-Public Use
  Company Number: BR-ASTRAZENECA-2009UW05656

PATIENT
  Age: 93 Year
  Sex: Female

DRUGS (5)
  1. SYMBICORT [Suspect]
     Indication: ASTHMA
     Dosage: 160/4.5 UG
     Route: 055
  2. SYMBICORT [Suspect]
     Indication: EMPHYSEMA
     Dosage: 160/4.5 UG
     Route: 055
  3. SYMBICORT [Suspect]
     Dosage: 320/9 UG
     Route: 055
  4. SYMBICORT [Suspect]
     Dosage: 320/9 UG
     Route: 055
  5. UNKNOWN ANTIHYPERTENSIVE [Concomitant]
     Indication: HYPERTENSION

REACTIONS (2)
  - DYSPNOEA [None]
  - FATIGUE [None]
